FAERS Safety Report 6042287-8 (Version None)
Quarter: 2009Q1

REPORT INFORMATION
  Report Type: 
  Country: None (occurrence: None)
  Receive Date: 20090116
  Receipt Date: 20090106
  Transmission Date: 20090719
  Serious: Yes (Hospitalization)
  Sender: FDA-Public Use
  Company Number: JP-JNJFOC-20081202611

PATIENT
  Sex: Female
  Weight: 52 kg

DRUGS (7)
  1. REMICADE [Suspect]
     Dosage: RECEIVED 6 INFUSIONS
     Route: 042
  2. REMICADE [Suspect]
     Dosage: 5TH INFUSION
     Route: 042
  3. REMICADE [Suspect]
     Indication: CROHN'S DISEASE
     Dosage: INFUSION 1-4 ON UNSPECIFIED DATES
     Route: 042
  4. PENTASA [Concomitant]
     Indication: CROHN'S DISEASE
     Route: 048
  5. GASTER [Concomitant]
     Indication: GASTRITIS
  6. ENTERONON-R [Concomitant]
     Indication: CROHN'S DISEASE
  7. MIYA BM [Concomitant]
     Indication: CROHN'S DISEASE
     Route: 048

REACTIONS (5)
  - ANAL ABSCESS [None]
  - ARTHRITIS [None]
  - CROHN'S DISEASE [None]
  - HYPERTHERMIA [None]
  - TYPE IV HYPERSENSITIVITY REACTION [None]
